FAERS Safety Report 7884875-X (Version None)
Quarter: 2011Q4

REPORT INFORMATION
  Report Type: 
  Country: None (occurrence: None)
  Receive Date: 20111102
  Receipt Date: 20111027
  Transmission Date: 20120403
  Serious: Yes (Other)
  Sender: FDA-Public Use
  Company Number: PHHY2011AR95663

PATIENT
  Sex: Female

DRUGS (1)
  1. DIOVAN HCT [Suspect]
     Indication: HYPERTENSION
     Dosage: 1 DF (80/12.5 MG) DAILY

REACTIONS (4)
  - ATRIAL FIBRILLATION [None]
  - PALPITATIONS [None]
  - HEART RATE INCREASED [None]
  - HYPERTENSION [None]
